FAERS Safety Report 16618778 (Version 2)
Quarter: 2019Q3

REPORT INFORMATION
  Report Type: Spontaneous
  Country: PL (occurrence: PL)
  Receive Date: 20190723
  Receipt Date: 20190723
  Transmission Date: 20191004
  Serious: Yes (Hospitalization, Other)
  Sender: FDA-Public Use
  Company Number: PHHY2019PL149112

PATIENT
  Age: 51 Year
  Sex: Female

DRUGS (11)
  1. FUROSEMIDE. [Suspect]
     Active Substance: FUROSEMIDE
     Indication: DIURETIC THERAPY
  2. HYDROCHLOROTHIAZIDE. [Suspect]
     Active Substance: HYDROCHLOROTHIAZIDE
     Indication: DIURETIC THERAPY
  3. HEPARIN [Suspect]
     Active Substance: HEPARIN SODIUM
     Indication: PRODUCT USED FOR UNKNOWN INDICATION
     Route: 065
  4. FONDAPARINUX [Concomitant]
     Active Substance: FONDAPARINUX
     Indication: PRODUCT USED FOR UNKNOWN INDICATION
     Route: 065
  5. ACICLOVIR [Suspect]
     Active Substance: ACYCLOVIR
     Indication: VIRAL INFECTION
     Route: 065
  6. HYDROCHLOROTHIAZIDE. [Suspect]
     Active Substance: HYDROCHLOROTHIAZIDE
     Indication: HYPERVOLAEMIA
     Route: 065
  7. FUROSEMIDE. [Suspect]
     Active Substance: FUROSEMIDE
     Indication: HYPERVOLAEMIA
     Route: 065
  8. METRONIDAZOLE. [Concomitant]
     Active Substance: METRONIDAZOLE
     Indication: CLOSTRIDIUM DIFFICILE INFECTION
     Route: 065
  9. ACENOCUMAROL [Concomitant]
     Active Substance: ACENOCOUMAROL
     Indication: PRODUCT USED FOR UNKNOWN INDICATION
     Route: 065
  10. TORASEMIDE [Suspect]
     Active Substance: TORSEMIDE
     Indication: HYPERVOLAEMIA
     Route: 065
  11. TORASEMIDE [Suspect]
     Active Substance: TORSEMIDE
     Indication: DIURETIC THERAPY

REACTIONS (4)
  - Renal impairment [Recovering/Resolving]
  - Drug ineffective [Unknown]
  - Glomerular filtration rate decreased [Recovering/Resolving]
  - Therapeutic product effect incomplete [Unknown]
